FAERS Safety Report 13532833 (Version 1)
Quarter: 2017Q2

REPORT INFORMATION
  Report Type: Spontaneous
  Country: US (occurrence: US)
  Receive Date: 20170510
  Receipt Date: 20170510
  Transmission Date: 20170830
  Serious: Yes (Other)
  Sender: FDA-Public Use
  Company Number: US-BAYER-2017-088090

PATIENT
  Age: 34 Year
  Sex: Female

DRUGS (1)
  1. MIRENA [Suspect]
     Active Substance: LEVONORGESTREL
     Dosage: 20 MCG/24HR, CONT
     Route: 015
     Dates: start: 20110113, end: 20140412

REACTIONS (4)
  - Pregnancy with contraceptive device [None]
  - Pelvic pain [None]
  - Uterine perforation [None]
  - Drug ineffective [None]

NARRATIVE: CASE EVENT DATE: 201404
